FAERS Safety Report 9307439 (Version 1)
Quarter: 2013Q2

REPORT INFORMATION
  Report Type: Spontaneous
  Country: US (occurrence: US)
  Receive Date: 20130524
  Receipt Date: 20130524
  Transmission Date: 20140414
  Serious: Yes (Hospitalization, Other)
  Sender: FDA-Public Use
  Company Number: US-JNJFOC-20130507821

PATIENT
  Age: 90 Year
  Sex: Female
  Weight: 65.77 kg

DRUGS (6)
  1. TYLENOL [Suspect]
     Indication: PYREXIA
     Route: 048
  2. TYLENOL [Suspect]
     Indication: ASTHENIA
     Route: 048
  3. TYLENOL [Suspect]
     Indication: DEHYDRATION
     Route: 048
  4. TYLENOL [Suspect]
     Indication: DECREASED APPETITE
     Route: 048
  5. TYLENOL [Suspect]
     Indication: MALAISE
     Route: 048
  6. SOTALOL [Concomitant]
     Indication: PULSE ABNORMAL
     Route: 065

REACTIONS (2)
  - Hyperhidrosis [Recovered/Resolved]
  - Therapeutic response delayed [Unknown]
